FAERS Safety Report 11129278 (Version 6)
Quarter: 2020Q4

REPORT INFORMATION
  Report Type: Spontaneous
  Country: US (occurrence: US)
  Receive Date: 20150521
  Receipt Date: 20201127
  Transmission Date: 20210113
  Serious: Yes (Hospitalization, Other)
  Sender: FDA-Public Use
  Company Number: US-PFIZER INC-2015170654

PATIENT
  Age: 64 Year
  Sex: Male

DRUGS (16)
  1. ACETAMINOPHEN. [Concomitant]
     Active Substance: ACETAMINOPHEN
     Dosage: 500 MG, AS NEEDED (500 MG,^ PRN (AS NEEDED) ORAL)
     Route: 048
  2. NOVOLIN 70/30 [Concomitant]
     Active Substance: INSULIN HUMAN
     Dosage: 20 IU, 2X/DAY (20 UNITS, SQ (SUBCUTANEOUS), BID (TWICE A DAY)
     Route: 058
  3. LYRICA [Suspect]
     Active Substance: PREGABALIN
     Indication: DIABETIC NEUROPATHY
     Dosage: 100 MG, 3X/DAY(EVERY 8 HOURS)
     Route: 048
  4. ALEVE [Concomitant]
     Active Substance: NAPROXEN SODIUM
     Dosage: 220 MG, 2X/DAY (220 MG ORAL CAPSULE 220 MG = 1 CAP, ORAL, BID (TWICE A DAY)
     Route: 048
  5. DULCOLAX STOOL SOFTENER [Concomitant]
     Active Substance: DOCUSATE SODIUM
     Dosage: 100 MG (100 MG, ORAL, SUN, TUE, WED, THU, SAT )
     Route: 048
  6. INDOMETHACIN [INDOMETACIN SODIUM] [Concomitant]
     Active Substance: INDOMETHACIN SODIUM
     Dosage: 50 MG, 3X/DAY (50 MG ORAL CAPSULE 50 MG, ORAL, TID (THREE TIMES A DAY))
     Route: 048
  7. LYRICA [Suspect]
     Active Substance: PREGABALIN
     Indication: NEUROPATHY PERIPHERAL
     Dosage: 150 MG, 2X/DAY
     Route: 048
  8. ALLOPURINOL. [Concomitant]
     Active Substance: ALLOPURINOL
     Indication: GOUT
     Dosage: 300 MG, DAILY (300 MG ORAL TABLET 300 MG = 1 TAB, ORAL, DAILY )
     Route: 048
  9. LASIX [Concomitant]
     Active Substance: FUROSEMIDE
     Dosage: 40 MG, 2X/DAY (40 MG ORAL TABLET 40 MG = 1 TAB, ORAL, BID (TWICE A DAY)
     Route: 048
  10. PEPCID [Concomitant]
     Active Substance: FAMOTIDINE
     Dosage: 20 MG, AS NEEDED (1 TAB, PRN (AS NEEDED)
     Route: 048
  11. LYRICA [Suspect]
     Active Substance: PREGABALIN
     Indication: LUMBAR RADICULOPATHY
     Dosage: 100 MG, 4X/DAY
  12. ASPIRIN (E.C.) [Concomitant]
     Active Substance: ASPIRIN
     Dosage: 81 MG, DAILY (81 MG = 1 TAB, ORAL, DAILY )
     Route: 048
  13. VITAMIN C [Concomitant]
     Active Substance: ASCORBIC ACID
     Dosage: 500 MG, DAILY (500 MG, ORAL, DAILY)
     Route: 048
  14. LYRICA [Suspect]
     Active Substance: PREGABALIN
     Indication: TARSAL TUNNEL SYNDROME
     Dosage: 150 MG, 2X/DAY (150MG BID (TWICE A DAY)
     Route: 048
     Dates: start: 201109
  15. GLUCOSAMINE [Concomitant]
     Active Substance: GLUCOSAMINE
     Dosage: 1500 MG, 2X/DAY (1,500 MG, ORAL, BID (TWICE A DAY))
     Route: 048
  16. FLOMAX [Concomitant]
     Active Substance: TAMSULOSIN HYDROCHLORIDE
     Indication: URINARY RETENTION
     Dosage: UNK

REACTIONS (10)
  - Diabetes mellitus [Recovering/Resolving]
  - Abdominal pain [Recovering/Resolving]
  - Feeling jittery [Unknown]
  - Burning sensation [Unknown]
  - Chronic kidney disease [Recovering/Resolving]
  - Acute kidney injury [Recovering/Resolving]
  - Wheezing [Unknown]
  - Hyperglycaemia [Recovering/Resolving]
  - Irritability [Unknown]
  - Muscle spasms [Unknown]
